FAERS Safety Report 20166075 (Version 2)
Quarter: 2021Q4

REPORT INFORMATION
  Report Type: Spontaneous
  Country: CL (occurrence: CL)
  Receive Date: 20211209
  Receipt Date: 20211229
  Transmission Date: 20220303
  Serious: Yes (Hospitalization, Other)
  Sender: FDA-Public Use
  Company Number: CL-GSKCCFAMERS-Case-01233184_AE-72316

PATIENT
  Age: 33 Year
  Sex: Female

DRUGS (2)
  1. NUCALA [Suspect]
     Active Substance: MEPOLIZUMAB
     Indication: Hypereosinophilic syndrome
     Dosage: Z , EVERY 5 OR 6 MONTHS
     Route: 058
     Dates: start: 20210108
  2. MONTELUKAST [Suspect]
     Active Substance: MONTELUKAST SODIUM
     Indication: Product used for unknown indication
     Dosage: 10 MG, BID , EVERY 12 HOURS
     Route: 048

REACTIONS (13)
  - Eosinophilia [Unknown]
  - Hypereosinophilic syndrome [Unknown]
  - Condition aggravated [Unknown]
  - Eosinophil count increased [Unknown]
  - Respiratory symptom [Unknown]
  - Dyspnoea [Unknown]
  - Chest pain [Unknown]
  - Ill-defined disorder [Unknown]
  - Therapeutic response unexpected [Unknown]
  - Off label use [Unknown]
  - Inappropriate schedule of product administration [Unknown]
  - Inappropriate schedule of product administration [Unknown]
  - Product use in unapproved indication [Unknown]

NARRATIVE: CASE EVENT DATE: 20210701
